FAERS Safety Report 20933139 (Version 1)
Quarter: 2022Q2

REPORT INFORMATION
  Report Type: Report from Study
  Country: US (occurrence: US)
  Receive Date: 20220608
  Receipt Date: 20220608
  Transmission Date: 20220720
  Serious: No
  Sender: FDA-Public Use
  Company Number: US-Ipsen Biopharmaceuticals, Inc.-2022-16302

PATIENT
  Sex: Female

DRUGS (1)
  1. SOMATULINE DEPOT [Suspect]
     Active Substance: LANREOTIDE ACETATE
     Indication: Carcinoid tumour of the small bowel
     Dosage: 120MG/0.5ML
     Route: 058
     Dates: start: 202101

REACTIONS (3)
  - Injection site nodule [Recovering/Resolving]
  - Hip deformity [Recovering/Resolving]
  - Laboratory test abnormal [Unknown]
